FAERS Safety Report 13300226 (Version 1)
Quarter: 2017Q1

REPORT INFORMATION
  Report Type: Report from Study
  Country: US (occurrence: US)
  Receive Date: 20170307
  Receipt Date: 20170307
  Transmission Date: 20170428
  Serious: No
  Sender: FDA-Public Use
  Company Number: US-009507513-1702USA008039

PATIENT
  Age: 57 Year

DRUGS (1)
  1. ZEPATIER [Suspect]
     Active Substance: ELBASVIR\GRAZOPREVIR
     Dosage: 1 DF, QD
     Route: 048
     Dates: start: 20161214

REACTIONS (2)
  - Drug dose omission [Unknown]
  - Viral load decreased [Unknown]

NARRATIVE: CASE EVENT DATE: 201702
